FAERS Safety Report 5117291-4 (Version None)
Quarter: 2006Q3

REPORT INFORMATION
  Report Type: 
  Country: None (occurrence: None)
  Receive Date: 20060926
  Receipt Date: 20060919
  Transmission Date: 20061208
  Serious: Yes (Other)
  Sender: FDA-Public Use
  Company Number: S06-USA-03737-01

PATIENT
  Age: 44 Year
  Sex: Female

DRUGS (5)
  1. LEXAPRO [Suspect]
     Indication: DEPRESSION
     Dosage: 20 MG QD; PO
     Route: 048
     Dates: start: 20050501, end: 20060801
  2. LEXAPRO [Suspect]
     Indication: DEPRESSION
     Dosage: 10 MG QD; PO
     Route: 048
     Dates: start: 20050301, end: 20050501
  3. SEROQUEL [Suspect]
     Dates: start: 20050301, end: 20060801
  4. ZOLOFT [Suspect]
     Dates: start: 20050101, end: 20060801
  5. ATENOLOL [Concomitant]

REACTIONS (6)
  - BIPOLAR DISORDER [None]
  - DIVORCED [None]
  - HALLUCINATION [None]
  - IMPRISONMENT [None]
  - INSOMNIA [None]
  - PANIC ATTACK [None]
